FAERS Safety Report 6339773-X (Version None)
Quarter: 2009Q3

REPORT INFORMATION
  Report Type: 
  Country: None (occurrence: None)
  Receive Date: 20090903
  Receipt Date: 20090831
  Transmission Date: 20100115
  Serious: Yes (Life-Threatening, Hospitalization)
  Sender: FDA-Public Use
  Company Number: IT-SANOFI-SYNTHELABO-F01200900709

PATIENT
  Sex: Male
  Weight: 84 kg

DRUGS (5)
  1. PAROXETINA [Concomitant]
     Route: 065
  2. LEUCOVORIN CALCIUM [Suspect]
     Route: 042
     Dates: start: 20090721, end: 20090721
  3. FLUOROURACIL [Suspect]
     Route: 042
     Dates: start: 20090721, end: 20090721
  4. AFLIBERCEPT [Suspect]
     Route: 042
     Dates: start: 20090721, end: 20090721
  5. OXALIPLATIN [Suspect]
     Indication: COLORECTAL CANCER METASTATIC
     Route: 041
     Dates: start: 20090721, end: 20090721

REACTIONS (2)
  - INTESTINAL PERFORATION [None]
  - NEUTROPENIA [None]
